FAERS Safety Report 6257532-3 (Version None)
Quarter: 2009Q3

REPORT INFORMATION
  Report Type: 
  Country: None (occurrence: None)
  Receive Date: 20090706
  Receipt Date: 20090625
  Transmission Date: 20100115
  Serious: Yes (Death)
  Sender: FDA-Public Use
  Company Number: CO-JNJFOC-20090609538

PATIENT

DRUGS (1)
  1. DORIBAX [Suspect]
     Indication: SEPSIS
     Route: 041

REACTIONS (1)
  - GASTRIC CANCER [None]
